FAERS Safety Report 7685978-5 (Version None)
Quarter: 2011Q3

REPORT INFORMATION
  Report Type: 
  Country: None (occurrence: None)
  Receive Date: 20110816
  Receipt Date: 20110804
  Transmission Date: 20111222
  Serious: Yes (Other)
  Sender: FDA-Public Use
  Company Number: PHFR2010IE05566

PATIENT
  Sex: Male

DRUGS (2)
  1. CLOZAPINE [Suspect]
     Indication: SCHIZOPHRENIA
     Route: 048
     Dates: start: 19931201
  2. CLOZAPINE [Suspect]
     Route: 048
     Dates: start: 20010701

REACTIONS (4)
  - PLATELET COUNT DECREASED [None]
  - LYMPHOCYTE MORPHOLOGY ABNORMAL [None]
  - WHITE BLOOD CELL COUNT INCREASED [None]
  - LYMPHOCYTE COUNT INCREASED [None]
